FAERS Safety Report 14195554 (Version 1)
Quarter: 2017Q4

REPORT INFORMATION
  Report Type: Report from Study
  Country: US (occurrence: US)
  Receive Date: 20171116
  Receipt Date: 20171116
  Transmission Date: 20180321
  Serious: Yes (Other)
  Sender: FDA-Public Use
  Company Number: US-BAYER-2017-218571

PATIENT
  Age: 32 Year
  Sex: Female

DRUGS (1)
  1. ASPIRIN. [Suspect]
     Active Substance: ASPIRIN
     Dosage: UNK

REACTIONS (6)
  - Depressed level of consciousness [None]
  - Hypotension [None]
  - Toxicity to various agents [None]
  - Respiratory depression [None]
  - Ventricular arrhythmia [None]
  - Bradycardia [None]
